FAERS Safety Report 20751449 (Version 1)
Quarter: 2022Q2

REPORT INFORMATION
  Report Type: Spontaneous
  Country: US (occurrence: US)
  Receive Date: 20220426
  Receipt Date: 20220426
  Transmission Date: 20220720
  Serious: No
  Sender: FDA-Public Use
  Company Number: US-ANIPHARMA-2022-US-001837

PATIENT
  Age: 78 Year
  Sex: Female
  Weight: 54.43 kg

DRUGS (9)
  1. PROPAFENONE HYDROCHLORIDE [Suspect]
     Active Substance: PROPAFENONE HYDROCHLORIDE
     Indication: Atrial fibrillation
     Dosage: 1 TABLET BID AS OF 01/10 1/2 TABLET BID
     Route: 048
     Dates: start: 20211001, end: 20220201
  2. SOTALOL [Suspect]
     Active Substance: SOTALOL
     Indication: Atrial fibrillation
     Dosage: 180 MG TABLET BID, ONE HALF 80MG TABLET A DAY
     Route: 048
     Dates: start: 20211029
  3. SYNTHROID [Concomitant]
     Active Substance: LEVOTHYROXINE SODIUM
  4. VITAMIN D2 [Concomitant]
     Active Substance: ERGOCALCIFEROL
  5. MAGNESIUM [Concomitant]
     Active Substance: MAGNESIUM
  6. CALCIUM CARBONATE [Concomitant]
     Active Substance: CALCIUM CARBONATE
  7. ZINC [Concomitant]
     Active Substance: ZINC
  8. VITAMIN B COMPLEX [Concomitant]
     Active Substance: CYANOCOBALAMIN\DEXPANTHENOL\NIACINAMIDE\PYRIDOXINE HYDROCHLORIDE\RIBOFLAVIN 5^-PHOSPHATE SODIUM\THIA
  9. BIOTIN [Concomitant]
     Active Substance: BIOTIN
     Dosage: 5000 MG

REACTIONS (3)
  - Alopecia [Recovered/Resolved]
  - Hair texture abnormal [Recovered/Resolved]
  - Drug ineffective [Not Recovered/Not Resolved]

NARRATIVE: CASE EVENT DATE: 20211001
